FAERS Safety Report 9794441 (Version 3)
Quarter: 2014Q1

REPORT INFORMATION
  Report Type: Spontaneous
  Country: US (occurrence: US)
  Receive Date: 20140102
  Receipt Date: 20140227
  Transmission Date: 20141002
  Serious: No
  Sender: FDA-Public Use
  Company Number: US-AMGEN-USASP2013086732

PATIENT
  Age: 61 Year
  Sex: Female

DRUGS (8)
  1. ENBREL [Suspect]
     Indication: RHEUMATOID ARTHRITIS
     Dosage: 50 MG, QWK
     Route: 058
     Dates: start: 201312
  2. ENBREL [Suspect]
     Dosage: UNK
     Route: 058
  3. FOLIC ACID [Concomitant]
     Dosage: UNK
  4. METHOTREXATE [Concomitant]
     Dosage: UNK
  5. PRILOSEC                           /00661201/ [Concomitant]
     Dosage: UNK
  6. PERCOCET                           /00867901/ [Concomitant]
     Dosage: UNK
  7. XANAX [Concomitant]
     Dosage: UNK
  8. ZYRTEC [Concomitant]
     Dosage: UNK

REACTIONS (11)
  - Musculoskeletal pain [Unknown]
  - Pain in extremity [Unknown]
  - Ingrown hair [Not Recovered/Not Resolved]
  - Acne [Not Recovered/Not Resolved]
  - Skin discolouration [Not Recovered/Not Resolved]
  - Contusion [Unknown]
  - Injection site erythema [Recovered/Resolved]
  - Injection site nodule [Unknown]
  - Injection site induration [Recovered/Resolved]
  - Injection site swelling [Recovered/Resolved]
  - Injection site haemorrhage [Unknown]
